FAERS Safety Report 14988931 (Version 5)
Quarter: 2018Q4

REPORT INFORMATION
  Report Type: Spontaneous
  Country: PL (occurrence: PL)
  Receive Date: 20180608
  Receipt Date: 20181015
  Transmission Date: 20190204
  Serious: Yes (Hospitalization, Other)
  Sender: FDA-Public Use
  Company Number: PL-PFIZER INC-2018226004

PATIENT
  Age: 61 Year
  Sex: Male

DRUGS (1)
  1. DICLOFENAC [Suspect]
     Active Substance: DICLOFENAC
     Indication: GOUT
     Dosage: HARD-TO-ASSESS DOSES

REACTIONS (11)
  - Tubulointerstitial nephritis [Recovering/Resolving]
  - Bronchitis [Recovering/Resolving]
  - Gout [Recovering/Resolving]
  - Drug abuse [Unknown]
  - Normocytic anaemia [Recovering/Resolving]
  - Blood pressure increased [Recovering/Resolving]
  - Arthralgia [Recovering/Resolving]
  - Oesophagitis [Recovering/Resolving]
  - Gastric disorder [Recovering/Resolving]
  - Chest pain [Recovering/Resolving]
  - Duodenitis [Recovering/Resolving]
